FAERS Safety Report 8030513-5 (Version None)
Quarter: 2012Q1

REPORT INFORMATION
  Report Type: 
  Country: None (occurrence: None)
  Receive Date: 20120105
  Receipt Date: 20111229
  Transmission Date: 20120608
  Serious: Yes (Other)
  Sender: FDA-Public Use
  Company Number: 1000026659

PATIENT
  Age: 59 Year
  Sex: Male

DRUGS (18)
  1. CARVEDILOL [Concomitant]
  2. CRESTOR [Concomitant]
  3. DIGOXIN [Concomitant]
  4. NITROGLYCERIN [Concomitant]
  5. PAIN RELIEVER NOS (PAIN RELIEVER NOS) (PAIN RELIEVER NOS) [Concomitant]
  6. ALBUTEROL (ALBUTEROL) (ALBUTEROL) [Concomitant]
  7. ASPIRIN [Concomitant]
  8. POTASSIUM (POTASSIUM) (POTASSIUM) [Concomitant]
  9. PLAVIX (CLOPIDOGREL BISULFATE) (CLOPIDOGREL BISULFATE) [Concomitant]
  10. METHOCARBAMOL (METHOCARBAMOL) (METHOCARBAMOL) [Concomitant]
  11. AMLODIPINE BESYLATE (AMLODIPINE BESILATE) (AMLODIPINE BESILATE) [Concomitant]
  12. DIOVAN [Concomitant]
  13. FUROSEMIDE [Concomitant]
  14. SPIRIVA (TIOTROPIUM BROMIDE) (TIOTROPIUM BROMIDE) [Concomitant]
  15. TRAMADOL HCL [Concomitant]
  16. DALIRESP [Suspect]
     Indication: EMPHYSEMA
     Dosage: 500 MCG (500 MCG, 1 IN 1 D), ORAL
     Route: 048
     Dates: start: 20111201
  17. DALIRESP [Suspect]
     Indication: CHRONIC OBSTRUCTIVE PULMONARY DISEASE
     Dosage: 500 MCG (500 MCG, 1 IN 1 D), ORAL
     Route: 048
     Dates: start: 20111201
  18. ALPRAZOLAM [Concomitant]

REACTIONS (9)
  - CONDITION AGGRAVATED [None]
  - TEMPERATURE INTOLERANCE [None]
  - CARDIOVERSION [None]
  - DRY MOUTH [None]
  - INSOMNIA [None]
  - INFLUENZA LIKE ILLNESS [None]
  - ANXIETY [None]
  - BACK PAIN [None]
  - NOCTURNAL DYSPNOEA [None]
